FAERS Safety Report 8622268 (Version 4)
Quarter: 2012Q4

REPORT INFORMATION
  Report Type: 
  Country: JP (occurrence: JP)
  Receive Date: 20120619
  Receipt Date: 20120906
  Transmission Date: 20130627
  Serious: Yes (Disabling)
  Sender: FDA-Public Use
  Company Number: JP-ROCHE-1078971

PATIENT
  Sex: Male

DRUGS (3)
  1. ALTEPLASE [Suspect]
     Indication: CEREBRAL INFARCTION
     Route: 065
  2. RADICUT [Concomitant]
     Route: 065
     Dates: start: 20101203, end: 20101216
  3. PERDIPINE [Concomitant]
     Route: 065
     Dates: start: 20101203, end: 20101208

REACTIONS (1)
  - Cerebral infarction [Unknown]
